FAERS Safety Report 5846457-0 (Version None)
Quarter: 2008Q3

REPORT INFORMATION
  Report Type: 
  Country: None (occurrence: None)
  Receive Date: 20080815
  Receipt Date: 20080804
  Transmission Date: 20090109
  Serious: Yes (Hospitalization)
  Sender: FDA-Public Use
  Company Number: US-WYE-H04255408

PATIENT
  Sex: Male
  Weight: 68.55 kg

DRUGS (15)
  1. AMIODARONE [Suspect]
     Indication: VENTRICULAR TACHYCARDIA
     Dosage: RECEIVED 400 ML WITHIN TWO HOURS
     Route: 042
     Dates: start: 20080509, end: 20080509
  2. AMIODARONE [Suspect]
     Dosage: 0.5 MG/MIN FOR 18 HOURS
     Route: 042
     Dates: start: 20080509, end: 20080501
  3. LOVENOX [Concomitant]
     Indication: PROPHYLAXIS
     Route: 058
     Dates: start: 20080508
  4. LOVENOX [Concomitant]
     Indication: DEEP VEIN THROMBOSIS
  5. LOSARTAN [Concomitant]
     Route: 048
     Dates: start: 20080508
  6. FOLATE SODIUM [Concomitant]
     Route: 048
     Dates: start: 20080508
  7. THIAMINE [Concomitant]
     Route: 048
     Dates: start: 20080508
  8. LIBRIUM [Concomitant]
     Dosage: 50 MG, FREQUENCY NOT SPECIFIED
     Route: 048
     Dates: start: 20080508
  9. MAGNESIUM SULFATE [Concomitant]
     Dosage: 1 GM/100 NS
     Route: 042
     Dates: start: 20080509
  10. POTASSIUM PHOSPHATES [Concomitant]
     Dosage: 40 MEQ, FREQUENCY NOT SPECIFIED
     Route: 042
     Dates: start: 20080509
  11. ALBUTEROL [Concomitant]
     Dosage: 2.5 (UNITS AND FREQUENCY NOT SPECIFIED)
     Route: 055
     Dates: start: 20080509
  12. ATROVENT [Concomitant]
     Dosage: 0.5 (UNITS UNKNOWN) EVERY 4 HOURS
     Route: 055
     Dates: start: 20080509
  13. DIPRIVAN [Suspect]
     Indication: VENTRICULAR TACHYCARDIA
     Dosage: 80 ML WITHIN TWO HOURS
     Route: 041
     Dates: start: 20080509, end: 20080509
  14. DIPRIVAN [Suspect]
     Dosage: 5 MCG/KG/MIN TITRATED EVERY 5 MINUTES TO RAMSEY OF II TO MAX OF 50 MCG/KG/MIN
     Route: 042
     Dates: start: 20080509, end: 20080501
  15. ASCORBIC ACID/ERGOCALCIFEROL/FOLIC ACID/NICOTINAMIDE/PANTHENOL/RETINOL [Concomitant]
     Route: 048
     Dates: start: 20080508

REACTIONS (3)
  - ACCIDENTAL OVERDOSE [None]
  - CONVULSION [None]
  - INCORRECT DOSE ADMINISTERED [None]
